FAERS Safety Report 7007677-5 (Version None)
Quarter: 2010Q3

REPORT INFORMATION
  Report Type: 
  Country: None (occurrence: None)
  Receive Date: 20100922
  Receipt Date: 20100910
  Transmission Date: 20110219
  Serious: Yes (Other)
  Sender: FDA-Public Use
  Company Number: JP-PFIZER INC-2010115939

PATIENT
  Age: 72 Year
  Sex: Male

DRUGS (11)
  1. SEIBULE [Suspect]
     Indication: DIABETES MELLITUS
     Dosage: 50 MG, UNK
     Route: 048
     Dates: start: 20100511, end: 20100607
  2. SALOBEL [Concomitant]
     Indication: HYPERURICAEMIA
     Dosage: 100 MG, UNK
     Route: 048
     Dates: start: 20010101
  3. NU LOTAN [Concomitant]
     Indication: HYPERTENSION
     Dosage: 25 MG, UNK
     Route: 048
     Dates: start: 20010101
  4. PORTOLAC [Concomitant]
     Indication: HEPATIC CIRRHOSIS
     Dosage: 6 G, UNK
     Route: 048
     Dates: start: 20000101
  5. BIOFERMIN [Concomitant]
     Indication: GASTROENTERITIS
     Dosage: 3 G, UNK
     Route: 048
     Dates: start: 20000101
  6. URSO 250 [Concomitant]
     Indication: CHRONIC HEPATITIS
     Dosage: 300 MG, UNK
     Route: 048
     Dates: start: 20000101
  7. TAGAMET [Concomitant]
     Indication: GASTRITIS
     Dosage: 600 MG, UNK
     Route: 048
     Dates: start: 20000101
  8. LIVACT [Concomitant]
     Indication: HEPATIC CIRRHOSIS
     Dosage: 8.3 G, UNK
     Route: 048
     Dates: start: 20000101
  9. METHYCOBAL [Concomitant]
     Indication: NEUROPATHY PERIPHERAL
     Dosage: 1500 UG, UNK
     Route: 048
     Dates: start: 20100511
  10. LEVOBUNOLOL HYDROCHLORIDE [Concomitant]
     Route: 048
  11. OXYGEN [Concomitant]
     Dosage: UNK

REACTIONS (1)
  - PNEUMATOSIS INTESTINALIS [None]
